FAERS Safety Report 6069493-0 (Version None)
Quarter: 2009Q1

REPORT INFORMATION
  Report Type: 
  Country: None (occurrence: None)
  Receive Date: 20090204
  Receipt Date: 20090204
  Transmission Date: 20090719
  Serious: No
  Sender: FDA-Public Use
  Company Number: None

PATIENT
  Age: 37 Year
  Sex: Male
  Weight: 74.8435 kg

DRUGS (1)
  1. LEVAQUIN [Suspect]
     Indication: BRONCHITIS
     Dosage: 1 TABLET -500MG- TWICE DAILY PO
     Route: 048
     Dates: start: 20090112, end: 20090118

REACTIONS (3)
  - IMPAIRED WORK ABILITY [None]
  - MYALGIA [None]
  - TENDONITIS [None]
